FAERS Safety Report 6422027-0 (Version None)
Quarter: 2009Q4

REPORT INFORMATION
  Report Type: 
  Country: None (occurrence: None)
  Receive Date: 20091030
  Receipt Date: 20091021
  Transmission Date: 20100525
  Serious: No
  Sender: FDA-Public Use
  Company Number: JP-ELI_LILLY_AND_COMPANY-JP200910005305

PATIENT
  Age: 16 Year

DRUGS (4)
  1. ZYPREXA [Suspect]
     Dosage: 5 MG, DAILY (1/D)
     Route: 048
     Dates: start: 20090101, end: 20091015
  2. TEGRETOL [Concomitant]
     Route: 048
  3. HIRNAMIN [Concomitant]
     Route: 048
  4. TETRAMIDE [Concomitant]
     Route: 048

REACTIONS (2)
  - OFF LABEL USE [None]
  - WHITE BLOOD CELL COUNT DECREASED [None]
